FAERS Safety Report 14739131 (Version 3)
Quarter: 2018Q3

REPORT INFORMATION
  Report Type: Report from Study
  Country: ES (occurrence: ES)
  Receive Date: 20180410
  Receipt Date: 20180701
  Transmission Date: 20181010
  Serious: Yes (Death, Other)
  Sender: FDA-Public Use
  Company Number: ES-BRISTOL-MYERS SQUIBB COMPANY-BMS-2018-032834

PATIENT
  Age: 70 Year
  Sex: Male

DRUGS (1)
  1. NIVOLUMAB [Suspect]
     Active Substance: NIVOLUMAB
     Indication: LUNG NEOPLASM
     Dosage: 3 MG/KG, Q2WK
     Route: 042
     Dates: start: 20180130, end: 20180214

REACTIONS (4)
  - Lymphopenia [Unknown]
  - Acute kidney injury [Unknown]
  - Malignant neoplasm progression [Fatal]
  - Cholestasis [Unknown]

NARRATIVE: CASE EVENT DATE: 20180212
